FAERS Safety Report 8586555-4 (Version None)
Quarter: 2012Q3

REPORT INFORMATION
  Report Type: 
  Country: None (occurrence: None)
  Receive Date: 20120730
  Receipt Date: 20120716
  Transmission Date: 20120928
  Serious: Yes (Hospitalization)
  Sender: FDA-Public Use
  Company Number: 12IN004963

PATIENT
  Age: 18 Hour
  Sex: Female

DRUGS (1)
  1. VALPROIC ACID [Suspect]
     Dosage: 300 MG, QD, TRANSPLACENTAL
     Route: 064

REACTIONS (13)
  - FOETAL ANTICONVULSANT SYNDROME [None]
  - FOETAL EXPOSURE DURING PREGNANCY [None]
  - LOW SET EARS [None]
  - CONGENITAL SKIN DISORDER [None]
  - NEONATAL RESPIRATORY DISTRESS SYNDROME [None]
  - DYSMORPHISM [None]
  - CONGENITAL HEPATOMEGALY [None]
  - LIMB MALFORMATION [None]
  - ANAL SKIN TAGS [None]
  - LUNG DISORDER [None]
  - NEONATAL CARDIAC FAILURE [None]
  - ATRIAL SEPTAL DEFECT [None]
  - CARDIOMEGALY [None]
